FAERS Safety Report 15607645 (Version 3)
Quarter: 2018Q4

REPORT INFORMATION
  Report Type: Spontaneous
  Country: GB (occurrence: GB)
  Receive Date: 20181112
  Receipt Date: 20181218
  Transmission Date: 20190205
  Serious: Yes (Other)
  Sender: FDA-Public Use
  Company Number: GB-TAKEDA-2018TEU006702

PATIENT
  Sex: Female

DRUGS (2)
  1. PENICILLIN                         /00000901/ [Concomitant]
     Active Substance: PENICILLIN G
     Indication: SINUSITIS
     Dosage: UNK
  2. LANSOPRAZOLE. [Suspect]
     Active Substance: LANSOPRAZOLE
     Indication: PRODUCT USED FOR UNKNOWN INDICATION
     Dosage: UNK
     Route: 065

REACTIONS (20)
  - Peripheral swelling [Unknown]
  - Bedridden [Unknown]
  - Neck pain [Unknown]
  - Gait disturbance [Unknown]
  - Rash [Unknown]
  - Insomnia [Unknown]
  - Joint swelling [Unknown]
  - Wound [Unknown]
  - Myalgia [Unknown]
  - Dysstasia [Unknown]
  - Pain [Unknown]
  - Blepharospasm [Unknown]
  - Muscle spasms [Unknown]
  - Arthralgia [Unknown]
  - Muscle twitching [Unknown]
  - Pain in extremity [Unknown]
  - Feeding disorder [Unknown]
  - Eye swelling [Unknown]
  - Ocular hyperaemia [Unknown]
  - Mobility decreased [Unknown]
